FAERS Safety Report 6634162-2 (Version None)
Quarter: 2010Q1

REPORT INFORMATION
  Report Type: 
  Country: None (occurrence: None)
  Receive Date: 20100315
  Receipt Date: 20100301
  Transmission Date: 20100710
  Serious: No
  Sender: FDA-Public Use
  Company Number: US-B.I. PHARMACEUTICALS,INC./RIDGEFIELD-2010-BP-02490BP

PATIENT
  Sex: Female

DRUGS (10)
  1. SPIRIVA [Suspect]
     Indication: CHRONIC OBSTRUCTIVE PULMONARY DISEASE
     Dosage: 18 MCG
     Route: 055
     Dates: start: 20100219
  2. SPIRIVA [Suspect]
     Indication: ASTHMA
  3. LISINOPRIL [Concomitant]
     Indication: HYPERTENSION
  4. HYDROCODONE [Concomitant]
     Indication: BACK PAIN
  5. ALBUTEROL [Concomitant]
     Indication: CHRONIC OBSTRUCTIVE PULMONARY DISEASE
  6. ALBUTEROL [Concomitant]
     Indication: ASTHMA
  7. ALBUTEROL SULATE [Concomitant]
     Indication: CHRONIC OBSTRUCTIVE PULMONARY DISEASE
  8. ALBUTEROL SULATE [Concomitant]
     Indication: ASTHMA
  9. PROAIR HFA [Concomitant]
     Indication: CHRONIC OBSTRUCTIVE PULMONARY DISEASE
  10. PROAIR HFA [Concomitant]
     Indication: ASTHMA

REACTIONS (1)
  - DRUG INEFFECTIVE [None]
